FAERS Safety Report 7612758-9 (Version None)
Quarter: 2011Q3

REPORT INFORMATION
  Report Type: 
  Country: None (occurrence: None)
  Receive Date: 20110708
  Receipt Date: 20110623
  Transmission Date: 20111222
  Serious: Yes (Other)
  Sender: FDA-Public Use
  Company Number: 2011AP001305

PATIENT
  Age: 63 Year
  Sex: Male

DRUGS (15)
  1. ISOPROPYL MYRISTATE [Concomitant]
  2. LANSOPRAZOLE [Concomitant]
  3. CLOBETASONE BUTYRATE [Concomitant]
  4. AMOXICILLIN [Concomitant]
  5. NYSTATIN [Concomitant]
  6. PRAVASTATIN [Concomitant]
  7. SODIUM PIDOLATE [Concomitant]
  8. MOMETASONE FUROATE [Concomitant]
  9. OXYTETRACYCLINE CALCIUM [Concomitant]
  10. PRAVASTATIN [Suspect]
     Indication: PRODUCT USED FOR UNKNOWN INDICATION
  11. BETAMETHASONE [Concomitant]
  12. PARAFFIN, LIQUID [Concomitant]
  13. MOMETASONE FUROATE [Concomitant]
  14. LEVOTHYROXINE SODIUM [Concomitant]
  15. SODIUM LACTATE IN PLASTIC CONTAINER [Concomitant]

REACTIONS (2)
  - ERYTHEMA MULTIFORME [None]
  - RASH PAPULOSQUAMOUS [None]
